FAERS Safety Report 8042205-7 (Version None)
Quarter: 2011Q4

REPORT INFORMATION
  Report Type: 
  Country: None (occurrence: None)
  Receive Date: 20111202
  Receipt Date: 20101105
  Transmission Date: 20120403
  Serious: Yes (Hospitalization, Other)
  Sender: FDA-Public Use
  Company Number: 2010SP058813

PATIENT
  Age: 33 Year
  Sex: Female
  Weight: 91.6266 kg

DRUGS (1)
  1. NUVARING [Suspect]
     Indication: MENSTRUAL CYCLE MANAGEMENT
     Dates: start: 20081108, end: 20081130

REACTIONS (6)
  - HYPOKALAEMIA [None]
  - HEADACHE [None]
  - TYMPANOSCLEROSIS [None]
  - SINUSITIS [None]
  - HYPERCOAGULATION [None]
  - INTRACRANIAL VENOUS SINUS THROMBOSIS [None]
